FAERS Safety Report 6758845-9 (Version None)
Quarter: 2010Q2

REPORT INFORMATION
  Report Type: 
  Country: None (occurrence: None)
  Receive Date: 20100603
  Receipt Date: 20100519
  Transmission Date: 20101027
  Serious: Yes (Hospitalization)
  Sender: FDA-Public Use
  Company Number: 011125

PATIENT
  Sex: Male

DRUGS (7)
  1. KEPPRA [Suspect]
     Indication: CONVULSION PROPHYLAXIS
     Dosage: (1000 MG ORAL), (PROGRESSIVE REDUCTION IN DOSAGE ORAL)
     Route: 048
     Dates: start: 20091001, end: 20100406
  2. KEPPRA [Suspect]
     Indication: CONVULSION PROPHYLAXIS
     Dosage: (1000 MG ORAL), (PROGRESSIVE REDUCTION IN DOSAGE ORAL)
     Route: 048
     Dates: start: 20100407, end: 20100412
  3. LASIX [Concomitant]
  4. TORVAST [Concomitant]
  5. LIMPIDEX [Concomitant]
  6. TRIATEC /00885601/ [Concomitant]
  7. ZYLORIC /00003301/ [Concomitant]

REACTIONS (2)
  - ECZEMA [None]
  - EYELID OEDEMA [None]
